FAERS Safety Report 21755434 (Version 1)
Quarter: 2022Q4

REPORT INFORMATION
  Report Type: Spontaneous
  Country: CA (occurrence: CA)
  Receive Date: 20221220
  Receipt Date: 20221220
  Transmission Date: 20230113
  Serious: Yes (Other)
  Sender: FDA-Public Use
  Company Number: CA-PFIZER INC-PV202200122702

PATIENT
  Age: 71 Year
  Sex: Male

DRUGS (3)
  1. GELFOAM [Suspect]
     Active Substance: GELATIN\THROMBIN HUMAN
     Indication: Therapeutic embolisation
     Dosage: UNK
     Dates: start: 2020
  2. DOXORUBICIN HYDROCHLORIDE [Suspect]
     Active Substance: DOXORUBICIN HYDROCHLORIDE
     Indication: Hepatocellular carcinoma
     Dosage: DOXORUBICIN AND ETHIODIZED-OIL [LIPIODOL] 100MG/8ML 1:1 VOLUME EMULSION WAS INJECTED
     Dates: start: 2020
  3. LIPIODOL [Suspect]
     Active Substance: ETHIODIZED OIL
     Indication: Hepatocellular carcinoma
     Dosage: DOXORUBICIN AND ETHIODIZED-OIL [LIPIODOL] 100MG/8ML 1:1 VOLUME EMULSION WAS INJECTED
     Dates: start: 2020

REACTIONS (2)
  - Off label use [Unknown]
  - Skin injury [Recovering/Resolving]

NARRATIVE: CASE EVENT DATE: 20200101
